FAERS Safety Report 6743677-8 (Version None)
Quarter: 2010Q2

REPORT INFORMATION
  Report Type: 
  Country: None (occurrence: None)
  Receive Date: 20100526
  Receipt Date: 20100526
  Transmission Date: 20101027
  Serious: Yes (Disabling)
  Sender: FDA-Public Use
  Company Number: None

PATIENT
  Age: 35 Year
  Sex: Female
  Weight: 56.6996 kg

DRUGS (2)
  1. FLUOXETINE [Suspect]
     Indication: DEPRESSION
     Dosage: 20 MG 1 A DAY
     Dates: start: 20090923, end: 20091113
  2. PREDNISONE TAB [Concomitant]

REACTIONS (6)
  - ARTHRALGIA [None]
  - CONFUSIONAL STATE [None]
  - DELUSION [None]
  - JOINT SWELLING [None]
  - MUSCLE SWELLING [None]
  - MYALGIA [None]
